FAERS Safety Report 11151095 (Version 1)
Quarter: 2015Q2

REPORT INFORMATION
  Report Type: Spontaneous
  Country: US (occurrence: None)
  Receive Date: 20150529
  Receipt Date: 20150529
  Transmission Date: 20150821
  Serious: Yes (Other)
  Sender: FDA-Public Use
  Company Number: None

PATIENT
  Age: 58 Year
  Sex: Female
  Weight: 117.94 kg

DRUGS (9)
  1. ZOLOFT [Concomitant]
     Active Substance: SERTRALINE HYDROCHLORIDE
  2. VITAMIN D3 [Suspect]
     Active Substance: CHOLECALCIFEROL
  3. LEVOFLOXACIN 500MG AUROBINDO [Suspect]
     Active Substance: LEVOFLOXACIN
     Indication: BRONCHITIS
     Route: 048
     Dates: start: 20150209, end: 20150215
  4. XANAX [Concomitant]
     Active Substance: ALPRAZOLAM
  5. PERPHENAZINE. [Concomitant]
     Active Substance: PERPHENAZINE
  6. TYLENOL [Concomitant]
     Active Substance: ACETAMINOPHEN
  7. ADVAIR HFA [Concomitant]
     Active Substance: FLUTICASONE PROPIONATE\SALMETEROL XINAFOATE
  8. LEVOTHYROXINE [Concomitant]
     Active Substance: LEVOTHYROXINE
  9. FLUTICASONE [Concomitant]
     Active Substance: FLUTICASONE\FLUTICASONE PROPIONATE

REACTIONS (1)
  - Musculoskeletal pain [None]

NARRATIVE: CASE EVENT DATE: 20150213
